FAERS Safety Report 8261123-2 (Version None)
Quarter: 2012Q2

REPORT INFORMATION
  Report Type: 
  Country: None (occurrence: None)
  Receive Date: 20120405
  Receipt Date: 20120402
  Transmission Date: 20120825
  Serious: Yes (Hospitalization)
  Sender: FDA-Public Use
  Company Number: PHHY2012VE028498

PATIENT
  Sex: Female

DRUGS (4)
  1. DIOVAN [Suspect]
     Indication: BLOOD PRESSURE ABNORMAL
     Dosage: 160 MG, BID
     Route: 048
     Dates: start: 20070101
  2. GALVUS [Concomitant]
     Indication: DIABETES MELLITUS
     Dosage: 1 DF, BID
  3. AMARYL [Concomitant]
     Indication: DIABETES MELLITUS
     Dosage: 4 MG, QD
  4. UNAGIL [Concomitant]
     Indication: INJURY

REACTIONS (3)
  - LOCALISED INFECTION [None]
  - SKIN ULCER [None]
  - DIABETIC FOOT [None]
